FAERS Safety Report 9401964 (Version 2)
Quarter: 2013Q3

REPORT INFORMATION
  Report Type: Spontaneous
  Country: US (occurrence: US)
  Receive Date: 20130716
  Receipt Date: 20130826
  Transmission Date: 20140515
  Serious: Yes (Death)
  Sender: FDA-Public Use
  Company Number: US-PFIZER INC-2013205312

PATIENT
  Age: 68 Year
  Sex: Female

DRUGS (4)
  1. XALKORI [Suspect]
     Indication: LUNG NEOPLASM MALIGNANT
     Dosage: 250 MG, 2X/DAY
     Route: 048
     Dates: start: 20130607, end: 20130609
  2. LOVENOX [Concomitant]
     Indication: PULMONARY EMBOLISM
     Dosage: 60 MG, 1X/DAY
     Route: 058
     Dates: start: 20130416, end: 20130615
  3. FISH OIL [Concomitant]
     Indication: CARDIAC DISORDER
     Dosage: 1 DF, 1X/DAY (1 CAP DAILY)
     Route: 048
     Dates: start: 2013, end: 2013
  4. VITAMIN B12 [Concomitant]
     Indication: VITAMIN B12 DEFICIENCY
     Dosage: 1000 UG, 1X/DAY
     Route: 048
     Dates: start: 20130417, end: 20130704

REACTIONS (3)
  - Disease progression [Fatal]
  - Lung neoplasm malignant [Fatal]
  - Visual impairment [Recovered/Resolved]
